FAERS Safety Report 20803521 (Version 2)
Quarter: 2022Q2

REPORT INFORMATION
  Report Type: Spontaneous
  Country: TH (occurrence: TH)
  Receive Date: 20220509
  Receipt Date: 20220523
  Transmission Date: 20220721
  Serious: Yes (Other)
  Sender: FDA-Public Use
  Company Number: TH-FERRINGPH-2022FE02041

PATIENT

DRUGS (1)
  1. MENOPUR [Suspect]
     Active Substance: FOLLITROPIN\LUTEINIZING HORMONE
     Indication: Stimulation of spermatogenesis
     Dosage: 200 INTERNATIONAL UNIT, 3 TIMES A WEEK
     Route: 058
     Dates: start: 20220227, end: 20220308

REACTIONS (4)
  - Hypersensitivity [Recovered/Resolved]
  - Hypersensitivity [Unknown]
  - Off label use [Recovered/Resolved]
  - Product use in unapproved indication [Recovered/Resolved]

NARRATIVE: CASE EVENT DATE: 20220227
